FAERS Safety Report 12742160 (Version 1)
Quarter: 2016Q3

REPORT INFORMATION
  Report Type: Spontaneous
  Country: US (occurrence: US)
  Receive Date: 20160913
  Receipt Date: 20160913
  Transmission Date: 20161109
  Serious: Yes (Other)
  Sender: FDA-Public Use
  Company Number: None

PATIENT
  Age: 53 Year
  Sex: Female
  Weight: 74.84 kg

DRUGS (32)
  1. PERI-COLACE (DOCUSATE SODIUM + SENNOSIDES) [Concomitant]
  2. AFRIN [Concomitant]
     Active Substance: OXYMETAZOLINE
  3. CANE [Concomitant]
  4. POTASSIUM CHLORIDE ER [Concomitant]
     Active Substance: POTASSIUM CHLORIDE
  5. TOPAMAX [Concomitant]
     Active Substance: TOPIRAMATE
  6. GAS-X [Concomitant]
     Active Substance: DIMETHICONE
  7. MILK OF MAGNESIA [Concomitant]
     Active Substance: MAGNESIUM HYDROXIDE
  8. PSEUDOEPHEDRINE (SUDAFED) [Concomitant]
  9. CETRIZINE [Concomitant]
     Active Substance: CETIRIZINE HYDROCHLORIDE
  10. CALCIUM [Concomitant]
     Active Substance: CALCIUM
  11. FAMOTIDINE. [Concomitant]
     Active Substance: FAMOTIDINE
  12. VENLAXAFINE ER (EFFEXOR XR) [Concomitant]
  13. ACETAMINOPHEN XS (TYLENOL) [Concomitant]
  14. GUAIFENESIN (MUCINEX) [Concomitant]
  15. SYNTHROID [Concomitant]
     Active Substance: LEVOTHYROXINE SODIUM
  16. IMODIUM [Concomitant]
     Active Substance: LOPERAMIDE HYDROCHLORIDE
  17. VITAMIN C WITH ROSE HIPS [Concomitant]
  18. VOLTAREN [Concomitant]
     Active Substance: DICLOFENAC SODIUM
  19. BACTROBAN [Concomitant]
     Active Substance: MUPIROCIN\MUPIROCIN CALCIUM
  20. CELEBREX [Suspect]
     Active Substance: CELECOXIB
     Indication: ARTHRITIS
     Route: 048
     Dates: start: 20160726, end: 20160824
  21. MULTIVITAMIN WITH MINERALS [Concomitant]
     Active Substance: MINERALS\VITAMINS
  22. MIRAMAX [Concomitant]
  23. TUMS [Concomitant]
     Active Substance: CALCIUM CARBONATE
  24. HYDROCODON-ACETAMINOPHEN [Concomitant]
     Active Substance: ACETAMINOPHEN\HYDROCODONE
  25. CLINDAMYCIN [Concomitant]
     Active Substance: CLINDAMYCIN\CLINDAMYCIN PHOSPHATE
  26. CELEBREX [Suspect]
     Active Substance: CELECOXIB
     Indication: PROCEDURAL PAIN
     Route: 048
     Dates: start: 20160726, end: 20160824
  27. ELIQUIS [Concomitant]
     Active Substance: APIXABAN
  28. PRILOSEC [Concomitant]
     Active Substance: OMEPRAZOLE MAGNESIUM
  29. VITAMIN D3 [Concomitant]
     Active Substance: CHOLECALCIFEROL
  30. CHLORTABS [Concomitant]
     Active Substance: CHLORPHENIRAMINE MALEATE
  31. SALINE NASAL SPRAY [Concomitant]
     Active Substance: SODIUM CHLORIDE
  32. HIBICLENS [Concomitant]
     Active Substance: CHLORHEXIDINE GLUCONATE

REACTIONS (4)
  - Irritability [None]
  - Hyperhidrosis [None]
  - Hypertension [None]
  - Anxiety [None]

NARRATIVE: CASE EVENT DATE: 20160726
